FAERS Safety Report 6173648-4 (Version None)
Quarter: 2009Q2

REPORT INFORMATION
  Report Type: 
  Country: None (occurrence: None)
  Receive Date: 20090430
  Receipt Date: 20090422
  Transmission Date: 20091009
  Serious: Yes (Other)
  Sender: FDA-Public Use
  Company Number: US-GENENTECH-281924

PATIENT

DRUGS (1)
  1. ACTIVASE [Suspect]
     Indication: CEREBRAL ISCHAEMIA
     Dosage: UNK
     Route: 042

REACTIONS (2)
  - CEREBRAL HAEMORRHAGE [None]
  - NEUROLOGICAL SYMPTOM [None]
